FAERS Safety Report 21775209 (Version 3)
Quarter: 2023Q2

REPORT INFORMATION
  Report Type: Spontaneous
  Country: JP (occurrence: JP)
  Receive Date: 20221225
  Receipt Date: 20230511
  Transmission Date: 20230722
  Serious: Yes (Death, Hospitalization)
  Sender: FDA-Public Use
  Company Number: JP-002147023-NVSJ2022JP276767

PATIENT

DRUGS (4)
  1. TAFINLAR [Suspect]
     Active Substance: DABRAFENIB MESYLATE
     Indication: Non-small cell lung cancer
     Dosage: 300 MG
     Route: 048
     Dates: start: 20220901, end: 20230129
  2. TAFINLAR [Suspect]
     Active Substance: DABRAFENIB MESYLATE
     Dosage: 100 MG(DOSE DECREASED)
     Route: 048
     Dates: start: 20230130
  3. MEKINIST [Suspect]
     Active Substance: TRAMETINIB DIMETHYL SULFOXIDE
     Indication: Non-small cell lung cancer
     Dosage: 2 MG
     Route: 048
     Dates: start: 20220901, end: 20230129
  4. MEKINIST [Suspect]
     Active Substance: TRAMETINIB DIMETHYL SULFOXIDE
     Dosage: 1 MG(DOSE INCREASED)
     Route: 048
     Dates: start: 20230130

REACTIONS (7)
  - Non-small cell lung cancer [Fatal]
  - Malignant neoplasm progression [Fatal]
  - Cognitive disorder [Recovered/Resolved]
  - Fibrin D dimer increased [Recovered/Resolved]
  - Blood creatine phosphokinase increased [Recovered/Resolved]
  - Pyrexia [Recovered/Resolved]
  - Oedema [Recovered/Resolved]
